FAERS Safety Report 4658756-9 (Version None)
Quarter: 2005Q2

REPORT INFORMATION
  Report Type: 
  Country: None (occurrence: None)
  Receive Date: 20050509
  Receipt Date: 20050408
  Transmission Date: 20051028
  Serious: Yes (Hospitalization)
  Sender: FDA-Public Use
  Company Number: KII-2005-0016012

PATIENT
  Age: 48 Year
  Sex: Male

DRUGS (4)
  1. MORPHINE SULFATE [Suspect]
     Dosage: ORAL
     Route: 048
  2. THIAZOLIDINEDIONE [Suspect]
  3. ACETYLSALICYLIC ACID SRT [Suspect]
  4. ETHANOL (ETHANOL) [Suspect]

REACTIONS (7)
  - ABNORMAL BEHAVIOUR [None]
  - BLOOD ETHANOL INCREASED [None]
  - BLOOD POTASSIUM DECREASED [None]
  - LETHARGY [None]
  - OVERDOSE [None]
  - REFUSAL OF TREATMENT BY PATIENT [None]
  - ROAD TRAFFIC ACCIDENT [None]
